FAERS Safety Report 17222298 (Version 1)
Quarter: 2020Q1

REPORT INFORMATION
  Report Type: Spontaneous
  Country: US (occurrence: US)
  Receive Date: 20191231
  Receipt Date: 20191231
  Transmission Date: 20200409
  Serious: Yes (Hospitalization)
  Sender: FDA-Public Use
  Company Number: None

PATIENT
  Age: 64 Year
  Sex: Male

DRUGS (3)
  1. ABACAVIR. [Concomitant]
     Active Substance: ABACAVIR
  2. LAMIVUDINE. [Suspect]
     Active Substance: LAMIVUDINE
     Indication: HIV INFECTION
     Route: 048
     Dates: start: 20190131
  3. EFAVIRENZ. [Concomitant]
     Active Substance: EFAVIRENZ

REACTIONS (2)
  - Gastric perforation [None]
  - Impaired healing [None]

NARRATIVE: CASE EVENT DATE: 20191221
